FAERS Safety Report 5376159-9 (Version None)
Quarter: 2007Q2

REPORT INFORMATION
  Report Type: 
  Country: None (occurrence: None)
  Receive Date: 20070606
  Receipt Date: 20070606
  Transmission Date: 20071010
  Serious: Yes (Life-Threatening, Hospitalization, Disabling)
  Sender: FDA-Public Use
  Company Number: None

PATIENT
  Age: 57 Year
  Sex: Male
  Weight: 120.2032 kg

DRUGS (1)
  1. OXYPLUS 35% FOOD GRADE HYDROGEN PEROXIDE - 2 TABLESPOONS 2 TO 3 TIMES [Suspect]
     Indication: CHRONIC FATIGUE SYNDROME
     Dosage: 2 TABLESPOONS AT 3 TIMES PER DAY
     Dates: start: 20050601

REACTIONS (4)
  - COLITIS [None]
  - MEDICATION ERROR [None]
  - NERVE INJURY [None]
  - PHARMACEUTICAL PRODUCT COMPLAINT [None]
